FAERS Safety Report 22235591 (Version 1)
Quarter: 2023Q2

REPORT INFORMATION
  Report Type: Spontaneous
  Country: GB (occurrence: GB)
  Receive Date: 20230420
  Receipt Date: 20230420
  Transmission Date: 20230721
  Serious: Yes (Hospitalization, Other)
  Sender: FDA-Public Use
  Company Number: GB-BAYER-2023A050463

PATIENT
  Age: 33 Year
  Sex: Male

DRUGS (2)
  1. CIPROFLOXACIN [Suspect]
     Active Substance: CIPROFLOXACIN
     Indication: Varicella
  2. TECOVIRIMAT [Concomitant]
     Active Substance: TECOVIRIMAT

REACTIONS (4)
  - Status epilepticus [None]
  - Acute kidney injury [None]
  - Rhabdomyolysis [None]
  - Compartment syndrome [None]
